FAERS Safety Report 11055297 (Version 1)
Quarter: 2015Q2

REPORT INFORMATION
  Report Type: Spontaneous
  Country: US (occurrence: None)
  Receive Date: 20150421
  Receipt Date: 20150421
  Transmission Date: 20150821
  Serious: Yes (Other)
  Sender: FDA-Public Use
  Company Number: None

PATIENT
  Age: 35 Year
  Sex: Female
  Weight: 93.6 kg

DRUGS (2)
  1. DULOXETINE [Suspect]
     Active Substance: DULOXETINE
     Indication: FIBROMYALGIA
     Dosage: DULOXETINE  60MG  PO?DATES OF USE: REPORTED IN EHR
     Route: 048
  2. DULOXETINE HYDROCHLORIDE 30MG LABORATORIOS DR. ESTEVE. S.A. BARCELONA [Suspect]
     Active Substance: DULOXETINE HYDROCHLORIDE
     Indication: FIBROMYALGIA
     Dosage: DULOXETINE 30MG  PO
     Route: 048
     Dates: start: 20150402, end: 20150407

REACTIONS (5)
  - Therapeutic response changed [None]
  - Anxiety [None]
  - Product substitution issue [None]
  - Palpitations [None]
  - Dizziness [None]

NARRATIVE: CASE EVENT DATE: 20150407
